FAERS Safety Report 15788769 (Version 3)
Quarter: 2020Q1

REPORT INFORMATION
  Report Type: Report from Study
  Country: DE (occurrence: DE)
  Receive Date: 20190104
  Receipt Date: 20200224
  Transmission Date: 20200409
  Serious: Yes (Hospitalization)
  Sender: FDA-Public Use
  Company Number: DE-ROCHE-2239763

PATIENT
  Age: 78 Year
  Sex: Male

DRUGS (1)
  1. TOCILIZUMAB. [Suspect]
     Active Substance: TOCILIZUMAB
     Indication: RHEUMATOID ARTHRITIS
     Route: 042
     Dates: end: 201802

REACTIONS (7)
  - Postoperative wound infection [Unknown]
  - Vascular stenosis [Recovered/Resolved]
  - Microcytic anaemia [Unknown]
  - Wound haematoma [Unknown]
  - Adenocarcinoma of colon [Not Recovered/Not Resolved]
  - Abdominal abscess [Unknown]
  - Myocardial infarction [Recovered/Resolved]

NARRATIVE: CASE EVENT DATE: 20180123
